FAERS Safety Report 6549025-0 (Version None)
Quarter: 2010Q1

REPORT INFORMATION
  Report Type: 
  Country: None (occurrence: None)
  Receive Date: 20100125
  Receipt Date: 20100115
  Transmission Date: 20100710
  Serious: Yes (Other)
  Sender: FDA-Public Use
  Company Number: US-JNJFOC-20100107681

PATIENT
  Sex: Female
  Weight: 72.58 kg

DRUGS (8)
  1. DURAGESIC-100 [Suspect]
     Indication: BACK PAIN
     Route: 062
  2. DURAGESIC-100 [Suspect]
     Route: 062
  3. DURAGESIC-100 [Suspect]
     Route: 062
  4. LORCET-HD [Concomitant]
     Indication: PAIN
     Dosage: 10/500/ 3 PER DAY
     Route: 048
  5. NEURONTIN [Concomitant]
     Indication: NERVE INJURY
     Route: 048
  6. IMITREX [Concomitant]
     Indication: HEADACHE
     Route: 058
  7. CLONAZEPAM [Concomitant]
     Indication: NERVOUSNESS
     Route: 048
  8. EFFEXOR XR [Concomitant]
     Indication: DEPRESSION
     Route: 048

REACTIONS (8)
  - BLOOD CHOLESTEROL INCREASED [None]
  - BLOOD TRIGLYCERIDES INCREASED [None]
  - DEPRESSION [None]
  - DRUG INEFFECTIVE [None]
  - FALL [None]
  - INSOMNIA [None]
  - INTERVERTEBRAL DISC PROTRUSION [None]
  - MUSCLE SPASMS [None]
